FAERS Safety Report 17804024 (Version 1)
Quarter: 2020Q2

REPORT INFORMATION
  Report Type: Spontaneous
  Country: GB (occurrence: GB)
  Receive Date: 20200519
  Receipt Date: 20200519
  Transmission Date: 20200714
  Serious: Yes (Other)
  Sender: FDA-Public Use
  Company Number: GB-TEVA-2020-GB-1235605

PATIENT
  Age: 26 Year
  Sex: Female
  Weight: 60.77 kg

DRUGS (2)
  1. CLINDAMYCIN. [Suspect]
     Active Substance: CLINDAMYCIN
     Indication: TOOTH INFECTION
     Dosage: 1200 MG, FOR 5 DAYS
     Route: 048
     Dates: start: 20200424, end: 20200428
  2. METRONIDAZOLE. [Suspect]
     Active Substance: METRONIDAZOLE
     Indication: TOOTH INFECTION
     Dosage: 1200 MG, FOR 5 DAYS
     Route: 048
     Dates: start: 20200424, end: 20200428

REACTIONS (3)
  - Feeling hot [Unknown]
  - Disturbance in attention [Unknown]
  - Somnolence [Recovering/Resolving]

NARRATIVE: CASE EVENT DATE: 20200426
